FAERS Safety Report 18639061 (Version 9)
Quarter: 2021Q4

REPORT INFORMATION
  Report Type: Report from Study
  Country: NL (occurrence: NL)
  Receive Date: 20201219
  Receipt Date: 20211206
  Transmission Date: 20220303
  Serious: Yes (Other)
  Sender: FDA-Public Use
  Company Number: NL-ABBVIE-20K-114-3574370-00

PATIENT
  Age: 68 Year
  Sex: Female

DRUGS (11)
  1. CARBIDOPA\LEVODOPA [Suspect]
     Active Substance: CARBIDOPA\LEVODOPA
     Indication: Parkinson^s disease
     Dosage: MD: 7.5ML, CD: 8.2ML/H, ED: 4.0ML
     Route: 050
     Dates: start: 20120502
  2. CARBIDOPA\LEVODOPA [Suspect]
     Active Substance: CARBIDOPA\LEVODOPA
     Dosage: MD: 7.0ML, CD: 8.2ML/H, ED: 4.0ML, CDN: 6.3ML/H, EDN: 3.5ML REMAINS AT 24 HOURS
     Route: 050
  3. CARBIDOPA\LEVODOPA [Suspect]
     Active Substance: CARBIDOPA\LEVODOPA
     Dosage: MD: 7.0ML, CD: 8.4ML/H, ED: 4.0ML, CDN: 6.3ML/H, EDN: 3.5ML REMAINS AT 24 HOURS
     Route: 050
  4. CARBIDOPA\LEVODOPA [Suspect]
     Active Substance: CARBIDOPA\LEVODOPA
     Dosage: MD: 7.5ML, CD: 8.5ML/H, ED: 4.0ML REMAINS AT 24 HOURS
     Route: 050
  5. CARBIDOPA\LEVODOPA [Suspect]
     Active Substance: CARBIDOPA\LEVODOPA
     Dosage: MD 8ML; CD 8.5 ML/H; ED 4 ML; CND 6.4 ML/H; END 3.5ML
     Route: 050
     Dates: start: 20120502
  6. CARBIDOPA\LEVODOPA [Suspect]
     Active Substance: CARBIDOPA\LEVODOPA
     Dosage: MD: 8.0ML; CD: 8.5ML/H; ED: 4.0ML; CND: 6.4ML/H; END: 3.5ML
     Route: 050
  7. CARBIDOPA\LEVODOPA [Suspect]
     Active Substance: CARBIDOPA\LEVODOPA
     Dosage: MD: 9.0ML
     Route: 050
  8. CARBIDOPA\LEVODOPA [Suspect]
     Active Substance: CARBIDOPA\LEVODOPA
     Dosage: MD: 8.7ML, CD: 8.5ML/H, ED: 3.5ML, CND: 6.4ML/H, END: 3.5ML
     Route: 050
  9. CARBIDOPA\LEVODOPA [Suspect]
     Active Substance: CARBIDOPA\LEVODOPA
     Dosage: MD: 8.7ML, CD: 8.4ML/H, ED: 3.5ML, CND: 6.4ML/H, END: 3.5ML
     Route: 050
  10. MIDAZOLAM [Concomitant]
     Active Substance: MIDAZOLAM
     Indication: Restlessness
     Route: 065
  11. LORAZEPAM [Concomitant]
     Active Substance: LORAZEPAM
     Indication: Restlessness

REACTIONS (25)
  - Weight decreased [Recovered/Resolved]
  - Weight gain poor [Not Recovered/Not Resolved]
  - Muscle rigidity [Unknown]
  - Enteral nutrition [Not Recovered/Not Resolved]
  - General physical health deterioration [Not Recovered/Not Resolved]
  - Hyperventilation [Not Recovered/Not Resolved]
  - Impaired quality of life [Recovering/Resolving]
  - Neurotransmitter level altered [Unknown]
  - Middle insomnia [Not Recovered/Not Resolved]
  - Tremor [Not Recovered/Not Resolved]
  - Gait disturbance [Not Recovered/Not Resolved]
  - Respiration abnormal [Not Recovered/Not Resolved]
  - Fatigue [Not Recovered/Not Resolved]
  - Decreased appetite [Not Recovered/Not Resolved]
  - Somnolence [Not Recovered/Not Resolved]
  - Hallucination, visual [Not Recovered/Not Resolved]
  - On and off phenomenon [Not Recovered/Not Resolved]
  - Freezing phenomenon [Not Recovered/Not Resolved]
  - Injection site erythema [Unknown]
  - Therapeutic product effect incomplete [Recovered/Resolved]
  - Therapeutic product effect variable [Not Recovered/Not Resolved]
  - Panic reaction [Not Recovered/Not Resolved]
  - Therapeutic response shortened [Not Recovered/Not Resolved]
  - Memory impairment [Not Recovered/Not Resolved]
  - Middle insomnia [Recovering/Resolving]

NARRATIVE: CASE EVENT DATE: 20200101
